FAERS Safety Report 6679677 (Version 11)
Quarter: 2013Q3

REPORT INFORMATION
  Report Type: Spontaneous
  Country: US (occurrence: US)
  Receive Date: 20080624
  Receipt Date: 20130903
  Transmission Date: 20140515
  Serious: Yes (Life-Threatening, Hospitalization, Congenital Anomaly, Other)
  Sender: FDA-Public Use
  Company Number: US-PFIZER INC-2008050217

PATIENT
  Sex: Male
  Weight: 4.2 kg

DRUGS (17)
  1. ZOLOFT [Suspect]
     Indication: PREMENSTRUAL DYSPHORIC DISORDER
     Dosage: UNK
     Route: 064
  2. ZOLOFT [Suspect]
     Indication: DEPRESSION
     Dosage: 50 MG, 1X/DAY
     Route: 064
     Dates: start: 2005, end: 200803
  3. ZOLOFT [Suspect]
     Indication: ANXIETY
     Dosage: 100 MG, UNK
     Route: 064
     Dates: start: 2005, end: 200803
  4. SERTRALINE HCL [Suspect]
     Dosage: UNK
     Route: 064
  5. AUGMENTIN XR [Concomitant]
     Indication: ACUTE TONSILLITIS
     Dosage: 1000-62.5 MG, TWO TABLETS TWICE DAILY
     Route: 064
     Dates: start: 20060901
  6. AMBIEN [Concomitant]
     Dosage: UNK
     Route: 064
  7. HYDROCODONE [Concomitant]
     Dosage: UNK
     Route: 064
  8. COMPAZINE [Concomitant]
     Dosage: UNK
     Route: 064
  9. MIGRIN-A [Concomitant]
     Dosage: UNK
     Route: 064
  10. PRENATAL VITAMINS [Concomitant]
     Dosage: UNK
     Route: 064
  11. AVELOX [Concomitant]
     Dosage: UNK
     Route: 064
  12. METHERGINE [Concomitant]
     Dosage: UNK
     Route: 064
  13. ENDOCET [Concomitant]
     Dosage: UNK
     Route: 064
  14. MEFLOQUINE [Concomitant]
     Dosage: UNK
     Route: 064
  15. NAPROXEN [Concomitant]
     Dosage: UNK
     Route: 064
  16. AUGMENTIN [Concomitant]
     Dosage: UNK
     Route: 064
  17. CLINDAMYCIN [Concomitant]
     Dosage: UNK
     Route: 064

REACTIONS (12)
  - Foetal exposure during pregnancy [Unknown]
  - Transposition of the great vessels [Unknown]
  - Pulmonary valve stenosis congenital [Recovered/Resolved]
  - Patent ductus arteriosus [Recovered/Resolved]
  - Atrial septal defect [Not Recovered/Not Resolved]
  - Atelectasis [Recovering/Resolving]
  - Neonatal respiratory distress syndrome [Unknown]
  - Congenital anomaly [Unknown]
  - Atrial septal defect [Unknown]
  - Pneumothorax [Recovered/Resolved]
  - Otitis media chronic [Recovered/Resolved]
  - Post procedural complication [Unknown]
